FAERS Safety Report 8616559 (Version 2)
Quarter: 2013Q2

REPORT INFORMATION
  Report Type: Spontaneous
  Country: US (occurrence: US)
  Receive Date: 20120615
  Receipt Date: 20130617
  Transmission Date: 20140414
  Serious: Yes (Hospitalization, Other)
  Sender: FDA-Public Use
  Company Number: US-ASTRAZENECA-2012SE35785

PATIENT
  Age: 13127 Day
  Sex: Male
  Weight: 88.9 kg

DRUGS (10)
  1. NEXIUM [Suspect]
     Indication: GASTROOESOPHAGEAL REFLUX DISEASE
     Dosage: ONCE A DAY
     Route: 048
     Dates: start: 20081008, end: 20110420
  2. NEXIUM [Suspect]
     Indication: GASTROOESOPHAGEAL REFLUX DISEASE
     Route: 048
     Dates: start: 20081008
  3. TUMS [Concomitant]
  4. ROLAIDS [Concomitant]
  5. VIAGRA [Concomitant]
     Dates: start: 20080730
  6. BUPROPION XL [Concomitant]
     Dates: start: 20080804
  7. SEROQUEL [Concomitant]
     Dates: start: 20080804
  8. GEMFIBROZIL [Concomitant]
     Dates: start: 20081014
  9. LOVAZA [Concomitant]
     Dosage: 1 GM
     Dates: start: 20081014
  10. LISINOPRIL HCTZ [Concomitant]
     Dosage: 20-25 MG
     Dates: start: 20081105

REACTIONS (4)
  - Hip fracture [Unknown]
  - Osteoporosis [Unknown]
  - Multiple fractures [Unknown]
  - Bone disorder [Unknown]
